FAERS Safety Report 23974606 (Version 3)
Quarter: 2024Q3

REPORT INFORMATION
  Report Type: Spontaneous
  Country: US (occurrence: US)
  Receive Date: 20240614
  Receipt Date: 20240717
  Transmission Date: 20241016
  Serious: No
  Sender: APOTEX
  Company Number: US-APOTEX-2024AP006969

PATIENT
  Age: 40 Year
  Sex: Female

DRUGS (1)
  1. ACYCLOVIR [Suspect]
     Active Substance: ACYCLOVIR
     Indication: Oral herpes
     Dosage: 2 DOSAGE FORM, BID
     Route: 065

REACTIONS (3)
  - Lip dry [Recovered/Resolved]
  - Cheilitis [Recovered/Resolved]
  - Angular cheilitis [Recovered/Resolved]

NARRATIVE: CASE EVENT DATE: 20240301
